FAERS Safety Report 11450946 (Version 1)
Quarter: 2015Q3

REPORT INFORMATION
  Report Type: Spontaneous
  Country: US (occurrence: None)
  Receive Date: 20150902
  Receipt Date: 20150902
  Transmission Date: 20151125
  Serious: No
  Sender: FDA-Public Use
  Company Number: None

PATIENT
  Age: 76 Year
  Sex: Female
  Weight: 68.04 kg

DRUGS (6)
  1. ATENOLOL. [Concomitant]
     Active Substance: ATENOLOL
  2. LISINOPRIL. [Concomitant]
     Active Substance: LISINOPRIL
  3. L-THYROXINE [Concomitant]
     Active Substance: LEVOTHYROXINE
  4. VITAMIN D3 [Concomitant]
     Active Substance: CHOLECALCIFEROL
  5. ASPIRIN. [Concomitant]
     Active Substance: ASPIRIN
  6. LEVOFLOXACIN. [Suspect]
     Active Substance: LEVOFLOXACIN
     Indication: INFECTION
     Route: 048
     Dates: start: 20150609, end: 20150614

REACTIONS (5)
  - Paraesthesia [None]
  - Fall [None]
  - Sensory disturbance [None]
  - Back pain [None]
  - Musculoskeletal disorder [None]

NARRATIVE: CASE EVENT DATE: 20150612
